FAERS Safety Report 6994500-8 (Version None)
Quarter: 2010Q3

REPORT INFORMATION
  Report Type: 
  Country: None (occurrence: None)
  Receive Date: 20100917
  Receipt Date: 20100906
  Transmission Date: 20110219
  Serious: Yes (Hospitalization)
  Sender: FDA-Public Use
  Company Number: JP-JNJFOC-20070700416

PATIENT
  Sex: Female
  Weight: 69.3 kg

DRUGS (15)
  1. PLACEBO (INFLIXIMAB) [Suspect]
     Indication: COLITIS ULCERATIVE
     Route: 042
  2. PLACEBO [Suspect]
     Route: 042
  3. PLACEBO [Suspect]
     Route: 042
  4. PLACEBO [Suspect]
     Route: 042
  5. IMURAN [Concomitant]
     Indication: COLITIS ULCERATIVE
     Route: 048
  6. GASTER D [Concomitant]
     Indication: GASTROINTESTINAL DISORDER THERAPY
     Dosage: STARTED BEFORE 25-AUG-2006
     Route: 048
  7. PREDONINE [Concomitant]
     Indication: COLITIS ULCERATIVE
     Route: 048
  8. PREDONINE [Concomitant]
     Route: 048
  9. PREDONINE [Concomitant]
     Route: 048
  10. PREDONINE [Concomitant]
     Route: 048
  11. PREDONINE [Concomitant]
     Route: 048
  12. BIO THREE [Concomitant]
     Indication: COLITIS ULCERATIVE
     Route: 048
  13. PENTASA [Concomitant]
     Indication: COLITIS ULCERATIVE
     Route: 048
  14. FERROMIA [Concomitant]
     Indication: ANAEMIA
     Route: 048
  15. CALONAL [Concomitant]
     Route: 048

REACTIONS (9)
  - ANAEMIA [None]
  - BREAST CANCER [None]
  - COLITIS ULCERATIVE [None]
  - CONDITION AGGRAVATED [None]
  - DIZZINESS [None]
  - DRUG INEFFECTIVE [None]
  - DYSPEPSIA [None]
  - HEADACHE [None]
  - VOMITING [None]
